FAERS Safety Report 10136217 (Version 1)
Quarter: 2014Q2

REPORT INFORMATION
  Report Type: Spontaneous
  Country: CA (occurrence: CA)
  Receive Date: 20140429
  Receipt Date: 20140429
  Transmission Date: 20141212
  Serious: Yes (Death)
  Sender: FDA-Public Use
  Company Number: CA-AMGEN-CANSP2014030385

PATIENT
  Age: 62 Year
  Sex: Male

DRUGS (2)
  1. NEULASTA [Suspect]
     Indication: NEUTROPENIA
     Dosage: 10MG/1.0ML
     Route: 065
     Dates: start: 20130717
  2. XGEVA [Suspect]
     Indication: METASTASES TO BONE
     Dosage: 120 MG/1.7 ML
     Route: 065
     Dates: start: 20130730

REACTIONS (1)
  - Death [Fatal]
